FAERS Safety Report 5611756-4 (Version None)
Quarter: 2008Q1

REPORT INFORMATION
  Report Type: 
  Country: None (occurrence: None)
  Receive Date: 20080128
  Receipt Date: 20060524
  Transmission Date: 20080703
  Serious: Yes (Hospitalization)
  Sender: FDA-Public Use
  Company Number: DSA_28253_2006

PATIENT
  Sex: Female

DRUGS (2)
  1. DILTIAZEM HYDROCHLORIDE               (TIAZAC XC-DILTIAZEM HYDROCHLORI [Suspect]
     Dosage: (DF ORAL)
     Route: 048
  2. ^BETA BLOCKER^               (^BETA BLOCKER^) [Suspect]

REACTIONS (2)
  - BRADYCARDIA [None]
  - DRUG INTERACTION [None]
